FAERS Safety Report 10608947 (Version 1)
Quarter: 2014Q4

REPORT INFORMATION
  Report Type: Spontaneous
  Country: US (occurrence: US)
  Receive Date: 20141125
  Receipt Date: 20141125
  Transmission Date: 20150529
  Serious: No
  Sender: FDA-Public Use
  Company Number: US-009507513-1411USA008960

PATIENT
  Sex: Female
  Weight: 58.96 kg

DRUGS (2)
  1. IMPLANON [Concomitant]
     Active Substance: ETONOGESTREL
     Dosage: UNK
  2. NEXPLANON [Suspect]
     Active Substance: ETONOGESTREL
     Indication: CONTRACEPTION
     Dosage: 1 NEXPLANON ROD
     Route: 059
     Dates: start: 201306

REACTIONS (2)
  - Metrorrhagia [Unknown]
  - Hypomenorrhoea [Unknown]

NARRATIVE: CASE EVENT DATE: 201306
